FAERS Safety Report 16868737 (Version 3)
Quarter: 2020Q1

REPORT INFORMATION
  Report Type: Spontaneous
  Country: US (occurrence: US)
  Receive Date: 20190930
  Receipt Date: 20200220
  Transmission Date: 20200409
  Serious: No
  Sender: FDA-Public Use
  Company Number: US-PFIZER INC-2019422294

PATIENT
  Age: 66 Year
  Sex: Female

DRUGS (2)
  1. IBRANCE [Suspect]
     Active Substance: PALBOCICLIB
     Dosage: 100 MG, CYCLIC (TAKE ON DAYS 1-21 OUT OF A 28 DAY CYCLE)
     Route: 048
     Dates: start: 20190902
  2. IBRANCE [Suspect]
     Active Substance: PALBOCICLIB
     Indication: BREAST CANCER FEMALE
     Dosage: 100 MG, CYCLIC (TAKE ON DAYS 1-21 OUT OF A 28 DAY CYCLE)
     Route: 048
     Dates: start: 20190828, end: 2019

REACTIONS (6)
  - Headache [Unknown]
  - Fatigue [Unknown]
  - Constipation [Unknown]
  - White blood cell count decreased [Unknown]
  - Decreased appetite [Unknown]
  - Hepatic enzyme increased [Unknown]

NARRATIVE: CASE EVENT DATE: 2019
